FAERS Safety Report 9548515 (Version 1)
Quarter: 2013Q3

REPORT INFORMATION
  Report Type: Spontaneous
  Country: US (occurrence: None)
  Receive Date: 20130919
  Receipt Date: 20130919
  Transmission Date: 20140515
  Serious: Yes (Hospitalization, Other)
  Sender: FDA-Public Use
  Company Number: AUR-APL-2013-07763

PATIENT
  Age: 66 Year
  Sex: Male

DRUGS (1)
  1. LEVETIRACETAM [Suspect]
     Indication: CONVULSION
     Dosage: TOTAL DAILY

REACTIONS (20)
  - Blood creatine phosphokinase increased [None]
  - Convulsion [None]
  - Hyperglycaemia [None]
  - Hypocalcaemia [None]
  - Anaemia [None]
  - Thalamic infarction [None]
  - Lacunar infarction [None]
  - Treatment noncompliance [None]
  - Grand mal convulsion [None]
  - Blood potassium decreased [None]
  - Blood sodium decreased [None]
  - Atrioventricular block first degree [None]
  - Electrocardiogram QT prolonged [None]
  - Suicidal ideation [None]
  - Major depression [None]
  - Intentional overdose [None]
  - Blood glucose increased [None]
  - Blood alcohol increased [None]
  - Disease recurrence [None]
  - Cerebral atrophy [None]
